FAERS Safety Report 25059037 (Version 1)
Quarter: 2025Q1

REPORT INFORMATION
  Report Type: Spontaneous
  Country: PL (occurrence: PL)
  Receive Date: 20250310
  Receipt Date: 20250310
  Transmission Date: 20250408
  Serious: Yes (Hospitalization, Other)
  Sender: CHEPLAPHARM
  Company Number: PL-CHEPLA-2025002950

PATIENT
  Age: 39 Year

DRUGS (10)
  1. VALGANCICLOVIR [Suspect]
     Active Substance: VALGANCICLOVIR
     Indication: Antiviral prophylaxis
     Dosage: DAILY DOSE: 450 MILLIGRAM
     Dates: start: 2022
  2. GANCICLOVIR [Suspect]
     Active Substance: GANCICLOVIR
     Indication: Cytomegalovirus infection
     Dates: start: 202208
  3. GANCICLOVIR [Suspect]
     Active Substance: GANCICLOVIR
     Indication: Cytomegalovirus infection
     Dates: start: 202208
  4. GANCICLOVIR [Suspect]
     Active Substance: GANCICLOVIR
     Indication: Cytomegalovirus infection
     Dates: start: 20230103
  5. FOSCARNET [Suspect]
     Active Substance: FOSCARNET
     Indication: Cytomegalovirus infection
     Route: 042
     Dates: start: 20230111, end: 20230119
  6. MYCOPHENOLATE MOFETIL [Concomitant]
     Active Substance: MYCOPHENOLATE MOFETIL
     Indication: Immunosuppression
     Dosage: REDUCTION OF MYCOPHENOLATE MOFETIL DOSE TO 1 G/DAY WAS ALSO RECOMMENDED.?DAILY DOSE: 1 GRAM
     Dates: start: 20220422, end: 202209
  7. MYCOPHENOLATE MOFETIL [Concomitant]
     Active Substance: MYCOPHENOLATE MOFETIL
     Indication: Immunosuppression
  8. TACROLIMUS [Concomitant]
     Active Substance: TACROLIMUS
     Indication: Immunosuppression
     Dosage: PROLONGED-RELEASE TACROLIMUS?DAILY DOSE: 3 MILLIGRAM
     Dates: start: 20220422
  9. PREDNISONE [Concomitant]
     Active Substance: PREDNISONE
     Indication: Immunosuppression
     Dosage: PREDNISONE 5 MG ONCE DAILY?DAILY DOSE: 5 MILLIGRAM
     Dates: start: 20220422
  10. MARIBAVIR [Concomitant]
     Active Substance: MARIBAVIR
     Indication: Cytomegalovirus infection
     Dates: start: 20230123

REACTIONS (8)
  - Acute kidney injury [Recovered/Resolved]
  - Kidney transplant rejection [Recovered/Resolved]
  - Drug resistance [Unknown]
  - Drug ineffective [Unknown]
  - Pseudomonas infection [Unknown]
  - Klebsiella infection [Unknown]
  - Staphylococcal infection [Unknown]
  - Bacterial infection [Unknown]

NARRATIVE: CASE EVENT DATE: 20220707
